FAERS Safety Report 5421781-4 (Version None)
Quarter: 2007Q3

REPORT INFORMATION
  Report Type: 
  Country: None (occurrence: None)
  Receive Date: 20070820
  Receipt Date: 20070807
  Transmission Date: 20080115
  Serious: Yes (Other)
  Sender: FDA-Public Use
  Company Number: 2007US-07394

PATIENT
  Age: 18 Year
  Sex: Female
  Weight: 52 kg

DRUGS (2)
  1. ISOTRETINOIN [Suspect]
     Dosage: 40 MG, QD, ORAL, 20 MG, QD, ORAL
     Route: 048
     Dates: start: 20070301, end: 20070508
  2. ISOTRETINOIN [Suspect]
     Dosage: 40 MG, QD, ORAL, 20 MG, QD, ORAL
     Route: 048
     Dates: start: 20070301, end: 20070509

REACTIONS (5)
  - ABORTION MISSED [None]
  - DRUG EXPOSURE DURING PREGNANCY [None]
  - ECTOPIC PREGNANCY [None]
  - UNINTENDED PREGNANCY [None]
  - VAGINAL HAEMORRHAGE [None]
